FAERS Safety Report 19513930 (Version 3)
Quarter: 2021Q3

REPORT INFORMATION
  Report Type: Report from Study
  Country: US (occurrence: US)
  Receive Date: 20210709
  Receipt Date: 20210923
  Transmission Date: 20211014
  Serious: No
  Sender: FDA-Public Use
  Company Number: NVSC2021US140578

PATIENT
  Sex: Female

DRUGS (2)
  1. COSENTYX [Suspect]
     Active Substance: SECUKINUMAB
     Indication: PSORIATIC ARTHROPATHY
  2. COSENTYX [Suspect]
     Active Substance: SECUKINUMAB
     Indication: PSORIASIS
     Dosage: STOPPED TAKING COSENTYX IMMEDIATELY AFTER SHE WAS INFORMED SHE DID NOT HAD PLAQUE PSORIASIS
     Route: 065

REACTIONS (7)
  - Hepatic steatosis [Unknown]
  - Feeling abnormal [Unknown]
  - Pain [Unknown]
  - Feeling hot [Unknown]
  - Crepitations [Unknown]
  - Arthropathy [Unknown]
  - Rash [Unknown]
